FAERS Safety Report 7451847-9 (Version None)
Quarter: 2011Q2

REPORT INFORMATION
  Report Type: 
  Country: None (occurrence: None)
  Receive Date: 20110502
  Receipt Date: 20100609
  Transmission Date: 20111010
  Serious: No
  Sender: FDA-Public Use
  Company Number: US-ASTRAZENECA-2010SE26866

PATIENT
  Age: 60 Year
  Sex: Female
  Weight: 67.6 kg

DRUGS (7)
  1. SEROQUEL [Suspect]
     Indication: STRESS
     Route: 048
     Dates: start: 20090101
  2. ATIVAN [Concomitant]
  3. MOTRIN [Concomitant]
  4. DARVOCET [Concomitant]
  5. SEROQUEL [Suspect]
     Indication: ANXIETY
     Route: 048
     Dates: start: 20090101
  6. DIAZIDE [Concomitant]
  7. NEXIUM [Suspect]
     Route: 048

REACTIONS (7)
  - NAUSEA [None]
  - DRUG DOSE OMISSION [None]
  - CRYING [None]
  - NERVOUSNESS [None]
  - ABNORMAL DREAMS [None]
  - NEGATIVE THOUGHTS [None]
  - VOMITING [None]
